FAERS Safety Report 13697019 (Version 1)
Quarter: 2017Q2

REPORT INFORMATION
  Report Type: Spontaneous
  Country: US (occurrence: US)
  Receive Date: 20170627
  Receipt Date: 20170627
  Transmission Date: 20170830
  Serious: Yes (Death)
  Sender: FDA-Public Use
  Company Number: None

PATIENT
  Age: 76 Year
  Sex: Female
  Weight: 51 kg

DRUGS (1)
  1. APIXABAN [Suspect]
     Active Substance: APIXABAN
     Indication: ATRIAL FIBRILLATION
     Dosage: ?          OTHER DOSE:MG;?
     Route: 048
     Dates: start: 20140417, end: 20170531

REACTIONS (8)
  - Vomiting [None]
  - Intraventricular haemorrhage [None]
  - Nausea [None]
  - Vasogenic cerebral oedema [None]
  - Brain midline shift [None]
  - Brain herniation [None]
  - Headache [None]
  - Neurological decompensation [None]

NARRATIVE: CASE EVENT DATE: 20170601
